FAERS Safety Report 12629672 (Version 1)
Quarter: 2016Q3

REPORT INFORMATION
  Report Type: Spontaneous
  Country: US (occurrence: US)
  Receive Date: 20160808
  Receipt Date: 20160808
  Transmission Date: 20161109
  Serious: No
  Sender: FDA-Public Use
  Company Number: US-GLAXOSMITHKLINE-US2016113190

PATIENT
  Age: 73 Year
  Sex: Female

DRUGS (1)
  1. PREVACID 24 HR [Suspect]
     Active Substance: LANSOPRAZOLE
     Indication: BARRETT^S OESOPHAGUS
     Dosage: 2 DF, QD (2 PILL DOSE DAILY)
     Route: 048
     Dates: start: 201505

REACTIONS (2)
  - Extra dose administered [Unknown]
  - Weight decreased [Not Recovered/Not Resolved]
